FAERS Safety Report 9648259 (Version 1)
Quarter: 2013Q4

REPORT INFORMATION
  Report Type: Spontaneous
  Country: US (occurrence: None)
  Receive Date: 20131024
  Receipt Date: 20131024
  Transmission Date: 20140711
  Serious: No
  Sender: FDA-Public Use
  Company Number: None

PATIENT
  Age: 73 Year
  Sex: Female
  Weight: 77.11 kg

DRUGS (8)
  1. WELCHOL [Suspect]
     Indication: BLOOD CHOLESTEROL INCREASED
     Route: 048
     Dates: start: 20100105, end: 20100401
  2. LEVOTHYROXINE [Concomitant]
  3. LISINOPRIL [Concomitant]
  4. TRAMADOL [Concomitant]
  5. ACETAMINOPHEN [Concomitant]
  6. ALENDRONATE SODIUM [Concomitant]
  7. D3 [Concomitant]
  8. TYLENOL [Concomitant]

REACTIONS (2)
  - Paralysis [None]
  - Movement disorder [None]
